FAERS Safety Report 7434089-2 (Version None)
Quarter: 2011Q2

REPORT INFORMATION
  Report Type: 
  Country: None (occurrence: None)
  Receive Date: 20110421
  Receipt Date: 20110421
  Transmission Date: 20111010
  Serious: Yes (Life-Threatening, Hospitalization, Disabling)
  Sender: FDA-Public Use
  Company Number: None

PATIENT
  Sex: Female
  Weight: 65.318 kg

DRUGS (2)
  1. PROPOXYPHENE NAPSYLATE AND ACETAMINOPHEN [Suspect]
     Indication: BACK PAIN
     Dosage: 1 EVERY 6 HOURS AS NEEDED
     Dates: start: 19820901, end: 20081120
  2. PROPOXYPHENE NAPSYLATE AND ACETAMINOPHEN [Suspect]
     Indication: MYALGIA
     Dosage: 1 EVERY 6 HOURS AS NEEDED
     Dates: start: 19820901, end: 20081120

REACTIONS (5)
  - PERICARDIAL CYST [None]
  - PALPITATIONS [None]
  - CORONARY ARTERIAL STENT INSERTION [None]
  - DRUG INTERACTION [None]
  - FIBROMYALGIA [None]
